FAERS Safety Report 5626876-8 (Version None)
Quarter: 2008Q1

REPORT INFORMATION
  Report Type: 
  Country: None (occurrence: None)
  Receive Date: 20080214
  Receipt Date: 20080211
  Transmission Date: 20080703
  Serious: Yes (Death)
  Sender: FDA-Public Use
  Company Number: US-MERCK-0802USA02740

PATIENT
  Age: 77 Year
  Sex: Male

DRUGS (4)
  1. COSOPT [Suspect]
     Indication: GLAUCOMA
     Route: 047
     Dates: start: 20050101, end: 20080202
  2. GABAPENTIN [Concomitant]
     Route: 065
  3. ARICEPT [Concomitant]
     Route: 065
  4. LODINE [Concomitant]
     Route: 065

REACTIONS (1)
  - CONVULSION [None]
